FAERS Safety Report 21582141 (Version 1)
Quarter: 2022Q4

REPORT INFORMATION
  Report Type: Report from Study
  Country: CA (occurrence: CA)
  Receive Date: 20221111
  Receipt Date: 20221111
  Transmission Date: 20230113
  Serious: Yes (Hospitalization, Other)
  Sender: FDA-Public Use
  Company Number: CA-ABBVIE-4132900

PATIENT
  Sex: Female
  Weight: 59 kg

DRUGS (1)
  1. HUMIRA [Suspect]
     Active Substance: ADALIMUMAB
     Indication: Crohn^s disease
     Route: 058
     Dates: start: 20110302

REACTIONS (12)
  - Cardiac failure congestive [Recovering/Resolving]
  - Hepatic function abnormal [Unknown]
  - COVID-19 [Recovered/Resolved]
  - Troponin decreased [Recovered/Resolved]
  - Arteriosclerosis coronary artery [Unknown]
  - Aortic valve calcification [Unknown]
  - Aortic stenosis [Unknown]
  - Left atrial enlargement [Unknown]
  - Blood creatinine increased [Recovered/Resolved]
  - Blood potassium increased [Recovered/Resolved]
  - Blood urea increased [Recovered/Resolved]
  - Arteriosclerosis coronary artery [Unknown]

NARRATIVE: CASE EVENT DATE: 20220101
